FAERS Safety Report 20164695 (Version 1)
Quarter: 2021Q4

REPORT INFORMATION
  Report Type: Spontaneous
  Country: FR (occurrence: FR)
  Receive Date: 20211209
  Receipt Date: 20211209
  Transmission Date: 20220303
  Serious: Yes (Other)
  Sender: FDA-Public Use
  Company Number: FR-SA-2021SA311863

PATIENT
  Age: 54 Year
  Sex: Male

DRUGS (6)
  1. ELOCTA [Suspect]
     Active Substance: EFMOROCTOCOG ALFA
     Indication: Factor VIII deficiency
     Dosage: 35 IU/KG, QW
     Dates: start: 2018, end: 2018
  2. ELOCTA [Suspect]
     Active Substance: EFMOROCTOCOG ALFA
     Indication: Factor VIII deficiency
     Dosage: 35 IU/KG, QW
     Dates: start: 2018, end: 2018
  3. ELOCTA [Suspect]
     Active Substance: EFMOROCTOCOG ALFA
     Indication: Haemarthrosis
     Dosage: 35 IU/KG, QW
     Dates: start: 2020
  4. ELOCTA [Suspect]
     Active Substance: EFMOROCTOCOG ALFA
     Indication: Haemarthrosis
     Dosage: 35 IU/KG, QW
     Dates: start: 2020
  5. ELOCTA [Suspect]
     Active Substance: EFMOROCTOCOG ALFA
     Dosage: UNK, PRN (FEWON DEMAND INJECTION WITH FVIII)
  6. ELOCTA [Suspect]
     Active Substance: EFMOROCTOCOG ALFA
     Dosage: UNK, PRN (FEWON DEMAND INJECTION WITH FVIII)

REACTIONS (2)
  - Joint destruction [Unknown]
  - Arthralgia [Not Recovered/Not Resolved]
